FAERS Safety Report 8979020 (Version 1)
Quarter: 2012Q4

REPORT INFORMATION
  Report Type: Spontaneous
  Country: US (occurrence: None)
  Receive Date: 20121218
  Receipt Date: 20121218
  Transmission Date: 20130627
  Serious: No
  Sender: FDA-Public Use
  Company Number: None

PATIENT
  Age: 56 Year
  Sex: Female
  Weight: 101.9 kg

DRUGS (2)
  1. BOCEPREVIR [Suspect]
     Indication: HEPATITIS C
     Route: 048
     Dates: start: 20120711, end: 20120727
  2. RIBAVIRIN [Suspect]
     Route: 048
     Dates: start: 20120615, end: 20120711

REACTIONS (19)
  - Headache [None]
  - Epistaxis [None]
  - Vomiting [None]
  - Eye swelling [None]
  - Muscle spasms [None]
  - Fatigue [None]
  - Nausea [None]
  - Diarrhoea [None]
  - Rash [None]
  - Dry mouth [None]
  - Depression [None]
  - Insomnia [None]
  - Mood swings [None]
  - Irritability [None]
  - Decreased appetite [None]
  - Myalgia [None]
  - Unevaluable event [None]
  - Pyrexia [None]
  - Arthralgia [None]
